FAERS Safety Report 7804407-1 (Version None)
Quarter: 2011Q4

REPORT INFORMATION
  Report Type: 
  Country: None (occurrence: None)
  Receive Date: 20111010
  Receipt Date: 20111005
  Transmission Date: 20120403
  Serious: Yes (Other)
  Sender: FDA-Public Use
  Company Number: DE-SANOFI-AVENTIS-2011SA065246

PATIENT
  Age: 79 Year
  Sex: Male

DRUGS (2)
  1. MULTAQ [Suspect]
     Route: 048
     Dates: start: 20110801, end: 20111001
  2. MARCUMAR [Concomitant]
     Route: 048

REACTIONS (3)
  - HEMIPARESIS [None]
  - MUSCULOSKELETAL STIFFNESS [None]
  - DYSGEUSIA [None]
